FAERS Safety Report 10575680 (Version 2)
Quarter: 2016Q2

REPORT INFORMATION
  Report Type: Spontaneous
  Country: US (occurrence: US)
  Receive Date: 20141111
  Receipt Date: 20160428
  Transmission Date: 20160815
  Serious: Yes (Other)
  Sender: FDA-Public Use
  Company Number: US-PFIZER INC-2014305144

PATIENT
  Age: 59 Year
  Sex: Female
  Weight: 86 kg

DRUGS (23)
  1. OXYCODONE HYDROCHLORIDE. [Concomitant]
     Active Substance: OXYCODONE HYDROCHLORIDE
     Dosage: 50 MG, DAILY (10MG 5X DAILY)
  2. PROPARACAINE [Concomitant]
     Active Substance: PROPARACAINE
     Dosage: 0.5 %, UNK
  3. SOMA [Concomitant]
     Active Substance: CARISOPRODOL
     Dosage: 350 MG, 2X/DAY
     Route: 048
  4. MOBIC [Concomitant]
     Active Substance: MELOXICAM
     Indication: PAIN IN EXTREMITY
     Dosage: UNK
  5. ACTONEL [Concomitant]
     Active Substance: RISEDRONATE SODIUM
     Indication: OSTEOPOROSIS
     Dosage: 150 MG, MONTHLY
     Route: 048
  6. LYRICA [Suspect]
     Active Substance: PREGABALIN
     Indication: FIBROMYALGIA
     Dosage: 175 MG, DAILY
     Route: 048
     Dates: start: 201311
  7. OXYCODONE [Concomitant]
     Active Substance: OXYCODONE
     Indication: BACK DISORDER
     Dosage: 10 MG, 4X/DAY (EVERY 6 HOURS)
     Route: 048
  8. SOMA [Concomitant]
     Active Substance: CARISOPRODOL
     Indication: FIBROMYALGIA
     Dosage: 250 MG, 4X/DAY
     Route: 048
  9. MELOXICAM. [Concomitant]
     Active Substance: MELOXICAM
     Indication: OSTEOARTHRITIS
     Dosage: 7.5 MG, 1X/DAY
  10. CITALOPRAM [Concomitant]
     Active Substance: CITALOPRAM HYDROBROMIDE
     Dosage: 40 MG, 1X/DAY
  11. PHENYLEPHRINE [Concomitant]
     Active Substance: PHENYLEPHRINE\PHENYLEPHRINE HYDROCHLORIDE
     Dosage: 2.5 %, UNK
  12. CITALOPRAM [Concomitant]
     Active Substance: CITALOPRAM HYDROBROMIDE
     Dosage: 20 MG, 1X/DAY
  13. LAMICTAL [Concomitant]
     Active Substance: LAMOTRIGINE
     Dosage: 100 MG, 2X/DAY
     Route: 048
  14. LYRICA [Suspect]
     Active Substance: PREGABALIN
     Indication: FATIGUE
     Dosage: 100 MG, 1X/DAY (QHS)
     Route: 048
  15. LAMICTAL [Concomitant]
     Active Substance: LAMOTRIGINE
     Indication: ADJUSTMENT DISORDER WITH DEPRESSED MOOD
     Dosage: 150 MG, 2X/DAY
  16. GABAPENTIN. [Concomitant]
     Active Substance: GABAPENTIN
     Indication: FIBROMYALGIA
     Dosage: 300 MG, 2X/DAY
     Route: 048
  17. FOSAMAX [Concomitant]
     Active Substance: ALENDRONATE SODIUM
     Indication: OSTEOPOROSIS
     Dosage: 70 MG, WEEKLY
     Route: 048
  18. LYRICA [Suspect]
     Active Substance: PREGABALIN
     Dosage: 75 MG, 1X/DAY
     Route: 048
  19. OXYCODONE [Concomitant]
     Active Substance: OXYCODONE
     Indication: FIBROMYALGIA
  20. LAMICTAL [Concomitant]
     Active Substance: LAMOTRIGINE
     Indication: BIPOLAR DISORDER
     Dosage: 100 MG, 1X/DAY
  21. TROPICAMIDE. [Concomitant]
     Active Substance: TROPICAMIDE
     Dosage: 1 %, UNK
  22. ZOFRAN [Concomitant]
     Active Substance: ONDANSETRON HYDROCHLORIDE
     Dosage: 8 MG, 2X/DAY
  23. MORPHINE [Concomitant]
     Active Substance: MORPHINE
     Indication: FIBROMYALGIA
     Dosage: 30 MG CAPSULE 1 CAP (S) EVERY 4 HOURS
     Route: 048

REACTIONS (21)
  - Photopsia [Unknown]
  - Weight increased [Unknown]
  - Vision blurred [Unknown]
  - Pain in extremity [Unknown]
  - Urinary tract infection [Unknown]
  - Nausea [Unknown]
  - Retinal tear [Unknown]
  - Ocular hyperaemia [Not Recovered/Not Resolved]
  - Energy increased [Unknown]
  - Retinal detachment [Unknown]
  - Vitreous detachment [Unknown]
  - Dysuria [Not Recovered/Not Resolved]
  - Visual impairment [Unknown]
  - Joint swelling [Unknown]
  - Arthralgia [Unknown]
  - Disturbance in attention [Unknown]
  - Cataract nuclear [Unknown]
  - Eye naevus [Unknown]
  - Dry mouth [Not Recovered/Not Resolved]
  - Pollakiuria [Unknown]
  - Myalgia [Unknown]

NARRATIVE: CASE EVENT DATE: 2014
